FAERS Safety Report 11801936 (Version 1)
Quarter: 2015Q4

REPORT INFORMATION
  Report Type: Spontaneous
  Country: US (occurrence: None)
  Receive Date: 20151203
  Receipt Date: 20151203
  Transmission Date: 20160305
  Serious: Yes (Life-Threatening, Hospitalization)
  Sender: FDA-Public Use
  Company Number: None

PATIENT
  Age: 66 Year
  Sex: Male
  Weight: 105.69 kg

DRUGS (16)
  1. SPIRALACTONE [Concomitant]
  2. CENTRUM SILVER [Concomitant]
     Active Substance: MINERALS\VITAMINS
  3. VITAMIN B COMPLEX [Concomitant]
     Active Substance: CYANOCOBALAMIN\DEXPANTHENOL\NIACINAMIDE\PYRIDOXINE HYDROCHLORIDE\RIBOFLAVIN 5^-PHOSPHATE SODIUM\THIAMINE HYDROCHLORIDE\VITAMIN B COMPLEX
  4. OSTEOBIOFLEX [Concomitant]
  5. LASIX [Concomitant]
     Active Substance: FUROSEMIDE
  6. CYMBALTA [Concomitant]
     Active Substance: DULOXETINE HYDROCHLORIDE
  7. TRAZODONE [Concomitant]
     Active Substance: TRAZODONE HYDROCHLORIDE
  8. PRADAXA [Concomitant]
     Active Substance: DABIGATRAN ETEXILATE MESYLATE
  9. PROZAC [Concomitant]
     Active Substance: FLUOXETINE HYDROCHLORIDE
  10. XANAX [Concomitant]
     Active Substance: ALPRAZOLAM
  11. ARIPIPRAZOLE 5 MG TRIGEN LAB [Suspect]
     Active Substance: ARIPIPRAZOLE
     Indication: INSOMNIA
     Dosage: 1 PILL AT BEDTIME TAKEN BY MOUTH?
     Route: 048
     Dates: start: 201511, end: 20151130
  12. DIGOXIN. [Concomitant]
     Active Substance: DIGOXIN
  13. ATIVAN [Concomitant]
     Active Substance: LORAZEPAM
  14. ARIPIPRAZOLE 5 MG TRIGEN LAB [Suspect]
     Active Substance: ARIPIPRAZOLE
     Indication: MENTAL DISORDER
     Dosage: 1 PILL AT BEDTIME TAKEN BY MOUTH?
     Route: 048
     Dates: start: 201511, end: 20151130
  15. APAP [Concomitant]
     Active Substance: ACETAMINOPHEN
  16. BENADRYL [Concomitant]
     Active Substance: DIPHENHYDRAMINE HYDROCHLORIDE

REACTIONS (7)
  - Renal failure [None]
  - Asthenia [None]
  - Tremor [None]
  - Fall [None]
  - Joint injury [None]
  - Bundle branch block [None]
  - Hepatic failure [None]

NARRATIVE: CASE EVENT DATE: 20151126
